FAERS Safety Report 6236942-4 (Version None)
Quarter: 2009Q2

REPORT INFORMATION
  Report Type: 
  Country: None (occurrence: None)
  Receive Date: 20090619
  Receipt Date: 20090216
  Transmission Date: 20091009
  Serious: No
  Sender: FDA-Public Use
  Company Number: US-ASTRAZENECA-2009UW04441

PATIENT
  Age: 50 Year
  Sex: Female
  Weight: 111.1 kg

DRUGS (3)
  1. SYMBICORT [Suspect]
     Indication: CHRONIC OBSTRUCTIVE PULMONARY DISEASE
     Dosage: 160/4.5 MCG, 2 PUFFS TWICE DAILY
     Route: 055
     Dates: start: 20080801
  2. PRILOSEC [Concomitant]
     Route: 048
  3. CELEXA [Concomitant]

REACTIONS (1)
  - OBSTRUCTIVE AIRWAYS DISORDER [None]
